FAERS Safety Report 6818251-5 (Version None)
Quarter: 2010Q3

REPORT INFORMATION
  Report Type: 
  Country: None (occurrence: None)
  Receive Date: 20100706
  Receipt Date: 20071023
  Transmission Date: 20110219
  Serious: Yes (Other)
  Sender: FDA-Public Use
  Company Number: US-PFIZER INC-2007061001

PATIENT
  Sex: Female

DRUGS (11)
  1. ZITHROMAX [Suspect]
     Indication: GASTROINTESTINAL DISORDER
     Dates: start: 20070622
  2. GLIPIZIDE [Concomitant]
  3. ZETIA [Concomitant]
  4. LASIX [Concomitant]
  5. POTASSIUM CHLORIDE [Concomitant]
  6. CLONAZEPAM [Concomitant]
  7. TOPROL-XL [Concomitant]
  8. PLAVIX [Concomitant]
  9. LEVOTHYROXINE SODIUM [Concomitant]
  10. CYMBALTA [Concomitant]
  11. DURAGESIC-100 [Concomitant]

REACTIONS (1)
  - BLOOD GLUCOSE INCREASED [None]
